FAERS Safety Report 16217818 (Version 1)
Quarter: 2019Q2

REPORT INFORMATION
  Report Type: Spontaneous
  Country: US (occurrence: US)
  Receive Date: 20190419
  Receipt Date: 20190419
  Transmission Date: 20190711
  Serious: No
  Sender: FDA-Public Use
  Company Number: US-SA-2019SA099545

PATIENT
  Sex: Female

DRUGS (1)
  1. CORTIZONE 10 [Suspect]
     Active Substance: HYDROCORTISONE
     Indication: RASH
     Dosage: UNK, UNK

REACTIONS (4)
  - Throat tightness [Unknown]
  - Urticaria [Unknown]
  - Rash [Unknown]
  - Hyperhidrosis [Unknown]
